FAERS Safety Report 8021609-2 (Version None)
Quarter: 2012Q1

REPORT INFORMATION
  Report Type: 
  Country: None (occurrence: None)
  Receive Date: 20120104
  Receipt Date: 20120104
  Transmission Date: 20120608
  Serious: No
  Sender: FDA-Public Use
  Company Number: None

PATIENT
  Age: 67 Year
  Sex: Male
  Weight: 83.461 kg

DRUGS (1)
  1. CHLORPROMAZINE [Suspect]
     Dosage: UNKNOWN

REACTIONS (1)
  - CORNEAL OPACITY [None]
